FAERS Safety Report 13093385 (Version 1)
Quarter: 2017Q1

REPORT INFORMATION
  Report Type: Spontaneous
  Country: US (occurrence: US)
  Receive Date: 20170105
  Receipt Date: 20170105
  Transmission Date: 20170428
  Serious: Yes (Death)
  Sender: FDA-Public Use
  Company Number: None

PATIENT
  Age: 45 Year
  Sex: Male

DRUGS (1)
  1. EPCLUSA [Suspect]
     Active Substance: SOFOSBUVIR\VELPATASVIR
     Indication: HEPATITIS C
     Dosage: 12/16/2017 TO 01/02/2017 1 TABLET DAILY ORAL
     Route: 048
     Dates: end: 20170102

REACTIONS (1)
  - Overdose [None]

NARRATIVE: CASE EVENT DATE: 20170102
